FAERS Safety Report 7944458-X (Version None)
Quarter: 2011Q4

REPORT INFORMATION
  Report Type: 
  Country: None (occurrence: None)
  Receive Date: 20111122
  Receipt Date: 20110713
  Transmission Date: 20120403
  Serious: Yes (Other)
  Sender: FDA-Public Use
  Company Number: PHHY2011US46878

PATIENT
  Age: 46 Year
  Sex: Female

DRUGS (13)
  1. OMEPRAZOLE [Concomitant]
  2. BUPROPION HCL [Concomitant]
  3. DIAZEPAM [Concomitant]
  4. GABAPENTIN [Concomitant]
  5. VITAMIN D [Concomitant]
  6. CALCIUM W/MAGNESIUM (CALCIUM, MAGNESIUM) [Concomitant]
  7. GILENYA [Suspect]
     Indication: MULTIPLE SCLEROSIS
     Dosage: 0.5 MG, DAILY, ORAL
     Route: 048
     Dates: start: 20110218
  8. AMOXI-CLAVULANICO (AMOXICILLIN, CLAVULANIC ACID) [Concomitant]
  9. OXYCODONE HCL [Concomitant]
  10. PROVIGIL [Concomitant]
  11. VITAMIN B2 (RIBOFLAVIN) [Concomitant]
  12. LOVAZA [Concomitant]
  13. PROMETHAZINE [Concomitant]

REACTIONS (7)
  - EAR INFECTION [None]
  - CONTUSION [None]
  - BRONCHITIS [None]
  - COUGH [None]
  - IMMUNE SYSTEM DISORDER [None]
  - MIGRAINE [None]
  - SINUSITIS [None]
